FAERS Safety Report 24995869 (Version 1)
Quarter: 2025Q1

REPORT INFORMATION
  Report Type: Spontaneous
  Country: US (occurrence: US)
  Receive Date: 20250221
  Receipt Date: 20250221
  Transmission Date: 20250408
  Serious: Yes (Hospitalization, Other)
  Sender: COOPERSURGICAL
  Company Number: US-COOPERSURGICAL, INC.-2025CPS001199

PATIENT
  Sex: Female

DRUGS (1)
  1. PARAGARD T 380A [Suspect]
     Active Substance: COPPER

REACTIONS (10)
  - Foetal growth restriction [Not Recovered/Not Resolved]
  - Premature baby [Not Recovered/Not Resolved]
  - Birth trauma [Not Recovered/Not Resolved]
  - Congenital anomaly [Not Recovered/Not Resolved]
  - Cleft lip and palate [Not Recovered/Not Resolved]
  - Tracheostomy [Unknown]
  - Gastrointestinal tube insertion [Unknown]
  - Disability [Not Recovered/Not Resolved]
  - Developmental delay [Not Recovered/Not Resolved]
  - Foetal exposure during pregnancy [Recovered/Resolved]

NARRATIVE: CASE EVENT DATE: 20190101
